FAERS Safety Report 4551519-4 (Version None)
Quarter: 2005Q1

REPORT INFORMATION
  Report Type: 
  Country: None (occurrence: None)
  Receive Date: 20050110
  Receipt Date: 20050110
  Transmission Date: 20050727
  Serious: Yes (Hospitalization)
  Sender: FDA-Public Use
  Company Number: None

PATIENT
  Sex: Male
  Weight: 102.1 kg

DRUGS (7)
  1. BETAPACE [Suspect]
  2. COREG [Suspect]
  3. LANOXIN [Concomitant]
  4. ZAROXOLYN [Concomitant]
  5. PREVACID [Concomitant]
  6. ZYLOPRIM [Concomitant]
  7. LASIX [Concomitant]

REACTIONS (4)
  - ASTHENIA [None]
  - DEHYDRATION [None]
  - DYSPNOEA [None]
  - THROMBOCYTOPENIA [None]
